FAERS Safety Report 6699101-7 (Version None)
Quarter: 2010Q2

REPORT INFORMATION
  Report Type: 
  Country: None (occurrence: None)
  Receive Date: 20100427
  Receipt Date: 20100415
  Transmission Date: 20101027
  Serious: Yes (Other)
  Sender: FDA-Public Use
  Company Number: US-WYE-H14645210

PATIENT
  Sex: Male
  Weight: 63.56 kg

DRUGS (3)
  1. EFFEXOR XR [Suspect]
     Indication: PANIC ATTACK
     Route: 048
     Dates: start: 20100301, end: 20100401
  2. EFFEXOR XR [Suspect]
     Route: 048
     Dates: start: 20100401, end: 20100401
  3. EFFEXOR XR [Suspect]
     Route: 048
     Dates: start: 20100401

REACTIONS (3)
  - ANXIETY [None]
  - NEGATIVE THOUGHTS [None]
  - RESTLESSNESS [None]
